FAERS Safety Report 5028993-2 (Version None)
Quarter: 2006Q2

REPORT INFORMATION
  Report Type: 
  Country: None (occurrence: None)
  Receive Date: 20060501
  Receipt Date: 20060125
  Transmission Date: 20061013
  Serious: No
  Sender: FDA-Public Use
  Company Number: 200610963US

PATIENT
  Sex: Female

DRUGS (1)
  1. KETEK [Suspect]
     Dosage: 400 MG PO
     Route: 048
     Dates: start: 20050907

REACTIONS (2)
  - CONDITION AGGRAVATED [None]
  - MALAISE [None]
